FAERS Safety Report 18694910 (Version 1)
Quarter: 2021Q1

REPORT INFORMATION
  Report Type: Spontaneous
  Country: US (occurrence: US)
  Receive Date: 20210101
  Receipt Date: 20210101
  Transmission Date: 20210419
  Serious: Yes (Hospitalization)
  Sender: FDA-Public Use
  Company Number: None

PATIENT
  Age: 62 Year
  Sex: Female

DRUGS (9)
  1. DALFAMPRIDINE 10 MG ER TAB [Suspect]
     Active Substance: DALFAMPRIDINE
     Indication: MULTIPLE SCLEROSIS
     Dosage: ?          OTHER FREQUENCY:Q12HRS;?
     Route: 048
     Dates: start: 20181016
  2. LIDOCAINE. [Concomitant]
     Active Substance: LIDOCAINE
  3. HYDROCO/APAP [Concomitant]
     Active Substance: ACETAMINOPHEN\HYDROCODONE
  4. TRAMADOL. [Concomitant]
     Active Substance: TRAMADOL
  5. MODAFINL [Concomitant]
  6. TOVIAZ [Concomitant]
     Active Substance: FESOTERODINE FUMARATE
  7. OMEPRAZOLE. [Concomitant]
     Active Substance: OMEPRAZOLE
  8. BACLOFEN. [Concomitant]
     Active Substance: BACLOFEN
  9. DIMETHL FUM [Concomitant]

REACTIONS (1)
  - Hospitalisation [None]

NARRATIVE: CASE EVENT DATE: 20201201
